FAERS Safety Report 4269706-1 (Version None)
Quarter: 2004Q1

REPORT INFORMATION
  Report Type: 
  Country: None (occurrence: None)
  Receive Date: 20040106
  Receipt Date: 20031222
  Transmission Date: 20041129
  Serious: Yes (Life-Threatening, Hospitalization)
  Sender: FDA-Public Use
  Company Number: 2003SA000181

PATIENT
  Age: 5 Year
  Sex: Female

DRUGS (9)
  1. THYMOGLOBULIN [Suspect]
     Indication: ACUTE MYELOID LEUKAEMIA
     Dosage: ONCE; INTRAVENOUS
     Route: 042
     Dates: start: 20031002, end: 20031006
  2. LANVIS (TIOGUANINE) [Suspect]
     Indication: ACUTE MYELOID LEUKAEMIA
     Dates: start: 20030925, end: 20030927
  3. AMSIDINE (AMSACRINE) [Suspect]
     Indication: ACUTE MYELOID LEUKAEMIA
     Dates: start: 20030101
  4. THIOTEPA [Suspect]
     Indication: ACUTE MYELOID LEUKAEMIA
     Dosage: 158 MG; ONCE; INTRAVENOUS
     Route: 042
     Dates: start: 20030930, end: 20030930
  5. FLUDARA [Suspect]
     Indication: ACUTE MYELOID LEUKAEMIA
     Dosage: 20 MG; DAILY; INTRAVENOUS
     Route: 042
     Dates: start: 20031001, end: 20031005
  6. METHYLPREDNISOLONE [Suspect]
     Indication: ACUTE MYELOID LEUKAEMIA
     Dosage: 15 MG; DAILY; INTRAVENOUS
     Route: 042
     Dates: start: 20021001, end: 20031004
  7. NEORAL [Suspect]
     Indication: BONE MARROW TRANSPLANT
     Dosage: ORAL
     Route: 048
     Dates: start: 20031002, end: 20031007
  8. NOVANTRONE [Concomitant]
  9. ARACYTINE [Concomitant]

REACTIONS (13)
  - ACUTE MYELOID LEUKAEMIA RECURRENT [None]
  - APHASIA [None]
  - BONE MARROW TRANSPLANT [None]
  - BRAIN OEDEMA [None]
  - CEREBRAL ATROPHY [None]
  - CEREBRAL VENTRICLE DILATATION [None]
  - CSF PROTEIN INCREASED [None]
  - DISTURBANCE IN ATTENTION [None]
  - DRUG INEFFECTIVE [None]
  - ENCEPHALOPATHY [None]
  - HEMIPARESIS [None]
  - MUSCLE SPASTICITY [None]
  - NUCLEAR MAGNETIC RESONANCE IMAGING BRAIN ABNORMAL [None]
